FAERS Safety Report 9549944 (Version 2)
Quarter: 2013Q3

REPORT INFORMATION
  Report Type: Report from Study
  Country: BR (occurrence: BR)
  Receive Date: 20130924
  Receipt Date: 20130924
  Transmission Date: 20140515
  Serious: Yes (Hospitalization)
  Sender: FDA-Public Use
  Company Number: ALCN2013BR002092

PATIENT
  Age: 70 Year
  Sex: Female
  Weight: 61 kg

DRUGS (5)
  1. TRAVATAN [Suspect]
     Indication: INTRAOCULAR PRESSURE INCREASED
     Route: 047
     Dates: start: 2010
  2. AZORGA [Suspect]
     Indication: INTRAOCULAR PRESSURE INCREASED
     Route: 047
     Dates: start: 2010
  3. SINVASTATINA [Concomitant]
     Indication: HYPERCHOLESTEROLAEMIA
     Route: 048
     Dates: start: 2010
  4. OMEPRAZOL [Concomitant]
     Indication: GASTRIC DISORDER
     Route: 048
     Dates: start: 2010
  5. SALYCILIC ACETYL ACID/LOSARTANA POT?SSICA/AMIORAL [Concomitant]
     Indication: CARDIAC DISORDER
     Route: 048
     Dates: start: 2012

REACTIONS (2)
  - Coronary artery bypass [Recovered/Resolved]
  - Heart valve operation [Recovered/Resolved]
